FAERS Safety Report 8652473 (Version 2)
Quarter: 2012Q4

REPORT INFORMATION
  Report Type: Report from Study
  Country: DE (occurrence: NL)
  Receive Date: 20120706
  Receipt Date: 20121005
  Transmission Date: 20130627
  Serious: Yes (Death, Hospitalization)
  Sender: FDA-Public Use
  Company Number: NL-GENZYME-CAMP-1000968

PATIENT
  Age: 73 Year
  Sex: Male

DRUGS (8)
  1. CAMPATH [Suspect]
     Indication: T-CELL LYMPHOMA
     Dosage: 30 mg, q2w
     Route: 058
     Dates: start: 20090625, end: 20090904
  2. PREDNISONE [Suspect]
     Indication: T-CELL LYMPHOMA
     Dosage: 100 mg, q2w
     Route: 048
     Dates: start: 20090617, end: 20090910
  3. CYCLOPHOSPHAMIDE [Suspect]
     Indication: T-CELL LYMPHOMA
     Dosage: 1500 mg, q2w
     Route: 042
     Dates: start: 20090625, end: 20090903
  4. DOXORUBICINE [Suspect]
     Indication: T-CELL LYMPHOMA
     Dosage: 100 mg, q2w
     Route: 042
     Dates: start: 20090625, end: 20090903
  5. VINCRISTINE [Suspect]
     Indication: T-CELL LYMPHOMA
     Dosage: 1 mg, q2w
     Route: 042
     Dates: start: 20090617, end: 20090903
  6. PEGFILGRASTIM [Suspect]
     Indication: T-CELL LYMPHOMA
     Dosage: 6 mg, q2w
     Route: 058
     Dates: start: 20090629, end: 20090906
  7. PEGFILGRASTIM [Suspect]
     Indication: PROPHYLAXIS
  8. CIPROFLOXACIN [Concomitant]
     Indication: URINARY TRACT INFECTION
     Dosage: UNK
     Route: 042
     Dates: start: 20090828, end: 20090903

REACTIONS (10)
  - Multi-organ failure [Fatal]
  - Febrile neutropenia [Fatal]
  - Respiratory failure [Fatal]
  - Acute respiratory distress syndrome [Fatal]
  - Stenotrophomonas infection [Fatal]
  - Ileus paralytic [Unknown]
  - Oesophagitis [Unknown]
  - Cardiac failure [Unknown]
  - Atrial fibrillation [Unknown]
  - Pneumonia bacterial [Fatal]
